FAERS Safety Report 13408755 (Version 1)
Quarter: 2017Q2

REPORT INFORMATION
  Report Type: Spontaneous
  Country: US (occurrence: US)
  Receive Date: 20170406
  Receipt Date: 20170406
  Transmission Date: 20170830
  Serious: No
  Sender: FDA-Public Use
  Company Number: US-JNJFOC-20170112699

PATIENT
  Age: 13 Year
  Sex: Male

DRUGS (4)
  1. RISPERDAL [Suspect]
     Active Substance: RISPERIDONE
     Indication: ATTENTION DEFICIT/HYPERACTIVITY DISORDER
     Route: 048
     Dates: start: 199801, end: 200212
  2. SEROQUEL [Suspect]
     Active Substance: QUETIAPINE FUMARATE
     Indication: BIPOLAR DISORDER
     Route: 065
     Dates: start: 200601, end: 200710
  3. RISPERDAL [Suspect]
     Active Substance: RISPERIDONE
     Indication: BIPOLAR DISORDER
     Route: 048
     Dates: start: 199801, end: 200212
  4. SEROQUEL [Suspect]
     Active Substance: QUETIAPINE FUMARATE
     Indication: ATTENTION DEFICIT/HYPERACTIVITY DISORDER
     Route: 065
     Dates: start: 200601, end: 200710

REACTIONS (3)
  - Weight increased [Unknown]
  - Gynaecomastia [Unknown]
  - Emotional disorder [Unknown]

NARRATIVE: CASE EVENT DATE: 200212
